FAERS Safety Report 5396197-X (Version None)
Quarter: 2007Q3

REPORT INFORMATION
  Report Type: 
  Country: None (occurrence: None)
  Receive Date: 20070725
  Receipt Date: 20070723
  Transmission Date: 20080115
  Serious: Yes (Death)
  Sender: FDA-Public Use
  Company Number: PHEH2007US05172

PATIENT
  Age: 67 Year
  Sex: Female
  Weight: 77.097 kg

DRUGS (20)
  1. ZELNORM [Suspect]
     Indication: CONSTIPATION
     Dosage: 6 MG, BID
     Route: 048
     Dates: start: 20060801, end: 20070101
  2. SPIRIVA [Concomitant]
     Dosage: 1 INHAL QD
  3. SPIRIVA [Concomitant]
     Dosage: 1 INHAL QD
  4. PAROXETINE [Concomitant]
     Dosage: 20 MG, UNK
  5. ANTIVERT [Concomitant]
     Dosage: 25 MG, UNK
  6. COLACE [Concomitant]
     Dosage: 100 MG, UNK
  7. HYDROXYZINE [Concomitant]
     Dosage: 25 MG, UNK
  8. ISOSORBIDE DINITRATE [Concomitant]
     Dosage: 10 MG, TID
  9. LASIX [Concomitant]
     Dosage: 40 MG, UNK
  10. ALBUTEROL [Concomitant]
     Dosage: 2 PUFFS
  11. POTASSIUM CHLORIDE [Concomitant]
     Dosage: 20 MG, BID
  12. DITROPAN [Concomitant]
     Dosage: 5 MG, UNK
  13. VYTORIN [Concomitant]
     Dosage: 10/80 MG
  14. ZEGERID [Concomitant]
     Dosage: 40 MG, UNK
  15. ADVAIR DISKUS 100/50 [Concomitant]
     Dosage: 250/50, QID
  16. TOPROL-XL [Concomitant]
     Dosage: 50 MG, QD
  17. ZANAFLEX [Concomitant]
     Dosage: 4 MG, Q8H
  18. ASPIRIN [Concomitant]
     Dosage: 325 UNK, QD
  19. MIRALAX [Concomitant]
     Dosage: 17 MG, UNK
  20. NABUMETONE [Concomitant]
     Dosage: 500 MG, BID

REACTIONS (1)
  - MYOCARDIAL INFARCTION [None]
